FAERS Safety Report 8368210-9 (Version None)
Quarter: 2012Q2

REPORT INFORMATION
  Report Type: 
  Country: None (occurrence: None)
  Receive Date: 20120517
  Receipt Date: 20120509
  Transmission Date: 20120825
  Serious: Yes (Other)
  Sender: FDA-Public Use
  Company Number: PHEH2012US010070

PATIENT
  Sex: Female

DRUGS (2)
  1. ESTRADERM [Suspect]
     Dosage: UNK UKN, UNK
     Route: 062
  2. ESTRADIOL [Suspect]
     Dosage: 0.1 MG, ONCE A WEEK
     Route: 062

REACTIONS (5)
  - TRANSIENT ISCHAEMIC ATTACK [None]
  - MALAISE [None]
  - ARTHRITIS [None]
  - HYPERTENSION [None]
  - FIBROMYALGIA [None]
